FAERS Safety Report 6912777 (Version 3)
Quarter: 2013Q2

REPORT INFORMATION
  Report Type: Spontaneous
  Country: DK (occurrence: DK)
  Receive Date: 20090218
  Receipt Date: 20130604
  Transmission Date: 20140414
  Serious: Yes (Hospitalization, Other)
  Sender: FDA-Public Use
  Company Number: DK-PFIZER INC-2009152639

PATIENT
  Age: 29 Year
  Sex: Female

DRUGS (2)
  1. CYTOTEC [Suspect]
     Indication: LABOUR INDUCTION
     Dosage: 25 UG, SINGLE DOSE
     Route: 015
     Dates: start: 20060916, end: 20060916
  2. PEVARYL [Concomitant]
     Indication: FUNGAL INFECTION
     Dosage: UNK
     Route: 067
     Dates: start: 20060911, end: 20060913

REACTIONS (6)
  - Off label use [Recovered/Resolved]
  - Abnormal labour [Recovered/Resolved]
  - Postpartum haemorrhage [Recovered/Resolved]
  - Vomiting [Recovered/Resolved]
  - Chills [Recovered/Resolved]
  - Frequent bowel movements [Recovered/Resolved]
